FAERS Safety Report 8578073 (Version 4)
Quarter: 2013Q2

REPORT INFORMATION
  Report Type: Spontaneous
  Country: US (occurrence: US)
  Receive Date: 20120524
  Receipt Date: 20130611
  Transmission Date: 20140414
  Serious: Yes (Other)
  Sender: FDA-Public Use
  Company Number: US-ASTRAZENECA-2012SE22229

PATIENT
  Age: 78 Year
  Sex: Male

DRUGS (4)
  1. PRILOSEC [Suspect]
     Route: 048
  2. CRESTOR [Suspect]
     Route: 048
  3. CRESTOR [Suspect]
     Route: 048
  4. NEXIUM [Suspect]
     Route: 048

REACTIONS (10)
  - Oesophageal haemorrhage [Unknown]
  - Ulcer haemorrhage [Unknown]
  - Musculoskeletal stiffness [Unknown]
  - Gait disturbance [Unknown]
  - Pain [Unknown]
  - Myalgia [Unknown]
  - Muscular weakness [Unknown]
  - Muscle disorder [Unknown]
  - Mobility decreased [Unknown]
  - Pain in extremity [Unknown]
